FAERS Safety Report 15685798 (Version 1)
Quarter: 2018Q4

REPORT INFORMATION
  Report Type: Spontaneous
  Country: JP (occurrence: JP)
  Receive Date: 20181204
  Receipt Date: 20181204
  Transmission Date: 20190205
  Serious: Yes (Other)
  Sender: FDA-Public Use
  Company Number: JP-SA-2018SA303836

PATIENT
  Age: 67 Year
  Sex: Female

DRUGS (3)
  1. DOCETAXEL. [Suspect]
     Active Substance: DOCETAXEL
     Dosage: UNK UNK, QCY
     Route: 065
  2. DOCETAXEL. [Suspect]
     Active Substance: DOCETAXEL
     Dosage: UNK
     Route: 065
  3. DOCETAXEL. [Suspect]
     Active Substance: DOCETAXEL
     Indication: SKIN ANGIOSARCOMA
     Dosage: UNK, QCY
     Route: 065

REACTIONS (3)
  - Metastatic lymphoma [Unknown]
  - Interstitial lung disease [Unknown]
  - Disease recurrence [Unknown]

NARRATIVE: CASE EVENT DATE: 201109
